FAERS Safety Report 9983370 (Version 1)
Quarter: 2014Q1

REPORT INFORMATION
  Report Type: Spontaneous
  Country: US (occurrence: US)
  Receive Date: 20140307
  Receipt Date: 20140307
  Transmission Date: 20141002
  Serious: Yes (Other)
  Sender: FDA-Public Use
  Company Number: US-SHIRE-US201400214

PATIENT
  Sex: 0

DRUGS (1)
  1. VYVANSE [Suspect]
     Indication: ATTENTION DEFICIT/HYPERACTIVITY DISORDER
     Dosage: 20 MG, 1X/DAY:QD (IN AM)
     Route: 048
     Dates: start: 2014, end: 20140227

REACTIONS (2)
  - Homicidal ideation [Not Recovered/Not Resolved]
  - Aggression [Not Recovered/Not Resolved]
